FAERS Safety Report 11388332 (Version 1)
Quarter: 2015Q3

REPORT INFORMATION
  Report Type: Spontaneous
  Country: IT (occurrence: IT)
  Receive Date: 20150817
  Receipt Date: 20150817
  Transmission Date: 20151125
  Serious: Yes (Disabling)
  Sender: FDA-Public Use
  Company Number: PHHY2015IT098324

PATIENT
  Age: 62 Year
  Sex: Male

DRUGS (2)
  1. ZOMETA [Suspect]
     Active Substance: ZOLEDRONIC ACID
     Indication: METASTASES TO BONE
     Dosage: 4 MG, QMO
     Route: 065
     Dates: start: 20130901, end: 20150201
  2. BEVACIZUMAB [Suspect]
     Active Substance: BEVACIZUMAB
     Indication: METASTASES TO BONE
     Dosage: 7.5 MG/KG, CYCLIC
     Route: 065
     Dates: start: 20130901, end: 20140401

REACTIONS (5)
  - Bone disorder [Unknown]
  - Osteonecrosis of jaw [Not Recovered/Not Resolved]
  - Oral disorder [Unknown]
  - Pain [Not Recovered/Not Resolved]
  - Gingival injury [Not Recovered/Not Resolved]

NARRATIVE: CASE EVENT DATE: 20140526
